FAERS Safety Report 20409711 (Version 10)
Quarter: 2024Q2

REPORT INFORMATION
  Report Type: Other
  Country: CA (occurrence: None)
  Receive Date: 20220201
  Receipt Date: 20240510
  Transmission Date: 20240715
  Serious: Yes (Hospitalization, Other)
  Sender: FDA-Public Use
  Company Number: CA-ROCHE-2905242

PATIENT
  Sex: Female

DRUGS (30)
  1. ACTEMRA [Suspect]
     Active Substance: TOCILIZUMAB
     Indication: Giant cell arteritis
     Dosage: DOSING AS PER PRESCRIPTION RECEIVED. TREATMENT ON HOLD
     Route: 058
     Dates: start: 20210507, end: 202105
  2. ACTEMRA [Suspect]
     Active Substance: TOCILIZUMAB
     Dosage: DRUG SUSPENSION AS OF JUL/AUG/2021
     Route: 058
     Dates: start: 20210612, end: 2021
  3. ACTEMRA [Suspect]
     Active Substance: TOCILIZUMAB
     Route: 058
     Dates: start: 20210929, end: 2021
  4. ACTEMRA [Suspect]
     Active Substance: TOCILIZUMAB
     Route: 058
     Dates: start: 20220303
  5. PREDNISONE [Suspect]
     Active Substance: PREDNISONE
     Indication: Product used for unknown indication
     Route: 065
  6. ACTEMRA [Suspect]
     Active Substance: TOCILIZUMAB
     Indication: Vasculitis
     Route: 042
     Dates: end: 20181030
  7. ACTEMRA [Suspect]
     Active Substance: TOCILIZUMAB
     Dosage: LAST ACTEMRA INFUSION- 09/JUL/2020
     Route: 042
     Dates: start: 20181127, end: 20200709
  8. ACTEMRA [Suspect]
     Active Substance: TOCILIZUMAB
     Route: 042
     Dates: start: 20170411, end: 20200709
  9. ASPIRIN [Concomitant]
     Active Substance: ASPIRIN
  10. CALCIUM [Concomitant]
     Active Substance: CALCIUM
  11. CANDESARTAN [Concomitant]
     Active Substance: CANDESARTAN
  12. CORTISONE [Concomitant]
     Active Substance: CORTISONE
  13. CYMBALTA [Concomitant]
     Active Substance: DULOXETINE HYDROCHLORIDE
  14. DEXILANT [Concomitant]
     Active Substance: DEXLANSOPRAZOLE
  15. DILAUDID [Concomitant]
     Active Substance: HYDROMORPHONE HYDROCHLORIDE
     Indication: Pain in extremity
  16. DILAUDID [Concomitant]
     Active Substance: HYDROMORPHONE HYDROCHLORIDE
     Indication: Musculoskeletal pain
  17. DULOXETINE [Concomitant]
     Active Substance: DULOXETINE
  18. FLOVENT [Concomitant]
     Active Substance: FLUTICASONE PROPIONATE
  19. FOLIC ACID [Concomitant]
     Active Substance: FOLIC ACID
  20. LUMIGAN [Concomitant]
     Active Substance: BIMATOPROST
  21. PROLIA [Concomitant]
     Active Substance: DENOSUMAB
  22. REFRESH TEARS [Concomitant]
     Active Substance: CARBOXYMETHYLCELLULOSE SODIUM
  23. SPIRONOLACTONE [Concomitant]
     Active Substance: SPIRONOLACTONE
  24. TIMOPTIC [Concomitant]
     Active Substance: TIMOLOL MALEATE
     Route: 047
  25. TRAMADOL [Concomitant]
     Active Substance: TRAMADOL\TRAMADOL HYDROCHLORIDE
  26. VALSARTAN [Concomitant]
     Active Substance: VALSARTAN
  27. VENTOLIN [Concomitant]
     Active Substance: ALBUTEROL SULFATE
  28. HYDRASENSE EYE DROPS [Concomitant]
  29. METFORMIN [Concomitant]
     Active Substance: METFORMIN HYDROCHLORIDE
  30. ELIQUIS [Concomitant]
     Active Substance: APIXABAN

REACTIONS (39)
  - Arthritis infective [Unknown]
  - Necrosis [Unknown]
  - Nephrolithiasis [Unknown]
  - Joint abscess [Unknown]
  - Sepsis [Unknown]
  - Arthralgia [Unknown]
  - Infective aortitis [Not Recovered/Not Resolved]
  - Pulmonary embolism [Unknown]
  - Localised infection [Unknown]
  - Hip fracture [Unknown]
  - Joint destruction [Unknown]
  - Arthritis infective [Unknown]
  - C-reactive protein increased [Unknown]
  - Inflammation [Unknown]
  - Pain [Unknown]
  - Giant cell arteritis [Unknown]
  - Device failure [Unknown]
  - Osteoarthritis [Unknown]
  - COVID-19 [Recovered/Resolved]
  - Immobile [Unknown]
  - Arthropathy [Unknown]
  - Back pain [Unknown]
  - Pelvic pain [Unknown]
  - Contusion [Unknown]
  - Peripheral swelling [Unknown]
  - Contusion [Unknown]
  - Aortic dissection [Unknown]
  - Kidney infection [Unknown]
  - Abscess limb [Unknown]
  - Urinary tract obstruction [Unknown]
  - Asthenia [Unknown]
  - Infection [Unknown]
  - Skin ulcer [Unknown]
  - Arthralgia [Unknown]
  - Musculoskeletal pain [Unknown]
  - Urinary tract infection [Unknown]
  - Dysuria [Not Recovered/Not Resolved]
  - Arthritis infective [Unknown]
  - Necrosis [Unknown]

NARRATIVE: CASE EVENT DATE: 20210101
